FAERS Safety Report 9439762 (Version 1)
Quarter: 2013Q3

REPORT INFORMATION
  Report Type: Spontaneous
  Country: US (occurrence: None)
  Receive Date: 20130802
  Receipt Date: 20130802
  Transmission Date: 20140515
  Serious: No
  Sender: FDA-Public Use
  Company Number: None

PATIENT
  Age: 70 Year
  Sex: Female

DRUGS (4)
  1. FORTEO [Suspect]
     Indication: OSTEOPOROSIS
     Dosage: 1 SOSE- PREFILLED PEN ONCE DAILY INJECTION SC
     Route: 058
     Dates: start: 20120419
  2. WELLBUTRIN [Concomitant]
  3. OMEPRAZOLE [Concomitant]
  4. CRESTOR [Concomitant]

REACTIONS (3)
  - Throat irritation [None]
  - Dry throat [None]
  - Sneezing [None]
